FAERS Safety Report 25612441 (Version 3)
Quarter: 2025Q3

REPORT INFORMATION
  Report Type: Spontaneous
  Country: CA (occurrence: CA)
  Receive Date: 20250728
  Receipt Date: 20250922
  Transmission Date: 20251021
  Serious: Yes (Hospitalization, Other)
  Sender: PFIZER
  Company Number: CA-PFIZER INC-202500099169

PATIENT
  Age: 19 Year
  Sex: Female

DRUGS (5)
  1. IXIFI [Suspect]
     Active Substance: INFLIXIMAB-QBTX
     Indication: Crohn^s disease
     Route: 042
     Dates: start: 20250507
  2. IXIFI [Suspect]
     Active Substance: INFLIXIMAB-QBTX
     Route: 042
     Dates: start: 20250620
  3. IXIFI [Suspect]
     Active Substance: INFLIXIMAB-QBTX
     Route: 042
     Dates: start: 20250801
  4. IXIFI [Suspect]
     Active Substance: INFLIXIMAB-QBTX
     Route: 042
     Dates: start: 20250912
  5. PREDNISONE [Concomitant]
     Active Substance: PREDNISONE

REACTIONS (19)
  - Condition aggravated [Not Recovered/Not Resolved]
  - Faecaloma [Recovered/Resolved]
  - Gastroenteritis viral [Unknown]
  - Asthenia [Unknown]
  - Arthralgia [Unknown]
  - Aphthous ulcer [Unknown]
  - Anal fissure [Unknown]
  - Blood iron decreased [Unknown]
  - Dehydration [Unknown]
  - Feeding disorder [Unknown]
  - Fistula [Recovered/Resolved]
  - Fatigue [Unknown]
  - Inflammation [Unknown]
  - Migraine [Not Recovered/Not Resolved]
  - Nausea [Unknown]
  - Off label use [Unknown]
  - Therapeutic response shortened [Unknown]
  - Vitamin B12 decreased [Unknown]
  - Vomiting [Unknown]

NARRATIVE: CASE EVENT DATE: 20250101
